FAERS Safety Report 12325235 (Version 1)
Quarter: 2016Q2

REPORT INFORMATION
  Report Type: Spontaneous
  Country: US (occurrence: JP)
  Receive Date: 20160502
  Receipt Date: 20160502
  Transmission Date: 20160815
  Serious: Yes (Other)
  Sender: FDA-Public Use
  Company Number: JP-MDT-ADR-2016-00785

PATIENT
  Weight: 50 kg

DRUGS (14)
  1. GABALON [Suspect]
     Active Substance: BACLOFEN
     Dosage: 95 MCG/DAY TO 600 MCG/DAY
     Route: 037
     Dates: start: 20080925, end: 20081127
  2. DEPAKENE [Suspect]
     Active Substance: VALPROIC ACID
     Dosage: FINE GRANULES
     Dates: start: 200812
  3. ALEVIATIN [Suspect]
     Active Substance: PHENYTOIN SODIUM
     Route: 042
     Dates: start: 200812
  4. GABALON [Suspect]
     Active Substance: BACLOFEN
     Dosage: 364.8 MCG/DAY
     Route: 037
     Dates: start: 20090602, end: 20090603
  5. CERCINE [Concomitant]
     Active Substance: DIAZEPAM
  6. GABALON [Suspect]
     Active Substance: BACLOFEN
     Dosage: 75 MCG/DAY
     Route: 037
     Dates: end: 20090212
  7. GABALON [Suspect]
     Active Substance: BACLOFEN
     Dosage: 50 MCG/ SCREENING DOSE L4/5
     Route: 037
     Dates: start: 200905, end: 200905
  8. GABALON [Suspect]
     Active Substance: BACLOFEN
     Dosage: 510 MCG/DAY
     Route: 037
     Dates: start: 20090521, end: 20090602
  9. GABALON [Suspect]
     Active Substance: BACLOFEN
     Dosage: 250 MCG/DAY TO 500 MCG/DAY
     Route: 037
     Dates: start: 20081202, end: 20081224
  10. HORIZON [Suspect]
     Active Substance: DIAZEPAM
     Route: 042
     Dates: start: 200812
  11. GABALON [Suspect]
     Active Substance: BACLOFEN
     Dosage: 300 MCG/DAY
     Route: 037
     Dates: start: 20090603
  12. HORIZON [Suspect]
     Active Substance: DIAZEPAM
     Route: 042
     Dates: start: 20090522
  13. RIVOTRIL [Concomitant]
     Active Substance: CLONAZEPAM
  14. GABAPEN [Concomitant]
     Active Substance: GABAPENTIN

REACTIONS (12)
  - Decreased appetite [Unknown]
  - Vomiting [Unknown]
  - Liver function test abnormal [Unknown]
  - Medical device site pain [Unknown]
  - Infusion site mass [Unknown]
  - Overdose [Unknown]
  - Loss of consciousness [Unknown]
  - Hepatic function abnormal [Unknown]
  - Pyrexia [Unknown]
  - Seizure [Unknown]
  - Mental disorder [Unknown]
  - Nausea [Unknown]
